FAERS Safety Report 12923328 (Version 1)
Quarter: 2016Q4

REPORT INFORMATION
  Report Type: Report from Study
  Country: TW (occurrence: TW)
  Receive Date: 20161108
  Receipt Date: 20161108
  Transmission Date: 20170207
  Serious: Yes (Life-Threatening, Other)
  Sender: FDA-Public Use
  Company Number: TW-JNJFOC-20161100056

PATIENT
  Age: 62 Year
  Sex: Male
  Weight: 60 kg

DRUGS (16)
  1. RINDERON V [Concomitant]
     Active Substance: BETAMETHASONE VALERATE
     Indication: DERMATITIS
     Route: 061
     Dates: start: 20161031
  2. METISONE [Concomitant]
     Indication: HYPERSENSITIVITY
     Route: 048
     Dates: start: 20161031
  3. RINDERON V [Concomitant]
     Active Substance: BETAMETHASONE VALERATE
     Indication: ECZEMA INFANTILE
     Route: 061
     Dates: start: 20161031
  4. FUSIDIC ACID [Concomitant]
     Active Substance: FUSIDIC ACID
     Indication: STAPHYLOCOCCAL INFECTION
     Route: 061
     Dates: start: 20161031
  5. METISONE [Concomitant]
     Indication: RHEUMATOID ARTHRITIS
     Route: 048
     Dates: start: 20161031
  6. ALLEGRA [Concomitant]
     Active Substance: FEXOFENADINE HYDROCHLORIDE
     Indication: RHINITIS ALLERGIC
     Route: 048
     Dates: start: 20161031
  7. DAIVOBET [Concomitant]
     Active Substance: BETAMETHASONE DIPROPIONATE\CALCIPOTRIENE
     Indication: PSORIASIS
     Route: 061
     Dates: start: 20161031
  8. STELARA [Suspect]
     Active Substance: USTEKINUMAB
     Indication: PSORIASIS
     Route: 058
     Dates: start: 20160613, end: 20161003
  9. RINDERON V [Concomitant]
     Active Substance: BETAMETHASONE VALERATE
     Indication: ECZEMA NUMMULAR
     Route: 061
     Dates: start: 20161031
  10. RINDERON V [Concomitant]
     Active Substance: BETAMETHASONE VALERATE
     Indication: ECZEMA
     Route: 061
     Dates: start: 20161031
  11. ALLEGRA [Concomitant]
     Active Substance: FEXOFENADINE HYDROCHLORIDE
     Indication: CHRONIC SPONTANEOUS URTICARIA
     Route: 048
     Dates: start: 20161031
  12. METISONE [Concomitant]
     Indication: RHEUMATIC FEVER
     Route: 048
     Dates: start: 20161031
  13. RINDERON V [Concomitant]
     Active Substance: BETAMETHASONE VALERATE
     Indication: SEBORRHOEIC DERMATITIS
     Route: 061
     Dates: start: 20161031
  14. RINDERON V [Concomitant]
     Active Substance: BETAMETHASONE VALERATE
     Indication: DERMATITIS
     Route: 061
     Dates: start: 20161031
  15. ACITRETIN. [Concomitant]
     Active Substance: ACITRETIN
     Indication: PSORIASIS
     Route: 048
     Dates: start: 20161031
  16. MIZOLLEN [Concomitant]
     Active Substance: MIZOLASTINE
     Indication: ANTIALLERGIC THERAPY
     Dosage: HS- AT BED TIME
     Route: 048
     Dates: start: 20161031

REACTIONS (2)
  - Calculus bladder [Unknown]
  - Prostate cancer [Recovered/Resolved]

NARRATIVE: CASE EVENT DATE: 201608
